FAERS Safety Report 26001972 (Version 1)
Quarter: 2025Q4

REPORT INFORMATION
  Report Type: Spontaneous
  Country: US (occurrence: US)
  Receive Date: 20251105
  Receipt Date: 20251105
  Transmission Date: 20260118
  Serious: Yes (Hospitalization)
  Sender: ANI
  Company Number: US-ANIPHARMA-2025-US-048605

PATIENT
  Age: 58 Year
  Sex: Female
  Weight: 76.66 kg

DRUGS (33)
  1. CORTICOTROPIN [Suspect]
     Active Substance: CORTICOTROPIN
     Indication: Rheumatoid arthritis
     Dosage: INJECT 40 UNITS (0.5ML) SUBCUTANEOUSLY 4 TIMES A WEEK, ALSO HAS UP TO FOUR TIMES A WEEK AS NEEDED FO
     Route: 058
     Dates: start: 202508
  2. DIFULAN [Concomitant]
  3. ALLOPURINOL [Concomitant]
     Active Substance: ALLOPURINOL
  4. ESTRADIOL [Concomitant]
     Active Substance: ESTRADIOL
  5. MAXZIDE [Concomitant]
     Active Substance: HYDROCHLOROTHIAZIDE\TRIAMTERENE
  6. ONE DAILY WOMENS [Concomitant]
  7. VALTREX [Concomitant]
     Active Substance: VALACYCLOVIR HYDROCHLORIDE
  8. PROZAC [Concomitant]
     Active Substance: FLUOXETINE HYDROCHLORIDE
  9. ELDERCAPS [Concomitant]
  10. PROVENTIL [Concomitant]
     Active Substance: ALBUTEROL
  11. MUCUS RELIEF D [Concomitant]
     Active Substance: GUAIFENESIN\PSEUDOEPHEDRINE HYDROCHLORIDE
  12. CALCIUM CARBONATE\ERGOCALCIFEROL\RETINOL [Concomitant]
     Active Substance: CALCIUM CARBONATE\ERGOCALCIFEROL\RETINOL
  13. ASMANEX [Concomitant]
     Active Substance: MOMETASONE FUROATE
  14. TUMS [Concomitant]
     Active Substance: CALCIUM CARBONATE
  15. GABAPENTIN [Concomitant]
     Active Substance: GABAPENTIN
  16. MOUNJARO [Concomitant]
     Active Substance: TIRZEPATIDE
  17. CYANOCOBALAMIN [Concomitant]
     Active Substance: CYANOCOBALAMIN
  18. VITAMIN D2 [Concomitant]
     Active Substance: ERGOCALCIFEROL
  19. LOPRESSOR [Concomitant]
     Active Substance: METOPROLOL TARTRATE
  20. HYCOSAMINE [Concomitant]
  21. MAGNESIUM [Concomitant]
     Active Substance: MAGNESIUM
  22. ALNUTEROL [Concomitant]
  23. TRELEGY ELLIPTA [Concomitant]
     Active Substance: FLUTICASONE FUROATE\UMECLIDINIUM BROMIDE\VILANTEROL TRIFENATATE
  24. CLONIDINE [Concomitant]
     Active Substance: CLONIDINE
  25. FOLIC ACID [Concomitant]
     Active Substance: FOLIC ACID
  26. ZOFRAN [Concomitant]
     Active Substance: ONDANSETRON HYDROCHLORIDE
  27. Ellipta [Concomitant]
  28. NYSTATIN [Concomitant]
     Active Substance: NYSTATIN
  29. LASIX [Concomitant]
     Active Substance: FUROSEMIDE
  30. REMERON [Concomitant]
     Active Substance: MIRTAZAPINE
  31. LOSARTAN [Concomitant]
     Active Substance: LOSARTAN
  32. REPATHA [Concomitant]
     Active Substance: EVOLOCUMAB
  33. COLCHICINE [Concomitant]
     Active Substance: COLCHICINE

REACTIONS (9)
  - Peripheral swelling [Unknown]
  - Condition aggravated [Unknown]
  - Haemoptysis [Recovering/Resolving]
  - Dyspnoea [Unknown]
  - Product dose omission issue [Unknown]
  - Abnormal weight gain [Unknown]
  - Contraindicated product administered [Unknown]
  - Anaemia [Unknown]
  - Transfusion [Unknown]

NARRATIVE: CASE EVENT DATE: 20251001
